FAERS Safety Report 7723684-9 (Version None)
Quarter: 2011Q3

REPORT INFORMATION
  Report Type: 
  Country: None (occurrence: None)
  Receive Date: 20110901
  Receipt Date: 20110819
  Transmission Date: 20111222
  Serious: Yes (Other)
  Sender: FDA-Public Use
  Company Number: US-ELI_LILLY_AND_COMPANY-US201108007172

PATIENT
  Sex: Female

DRUGS (6)
  1. CYMBALTA [Suspect]
     Indication: FIBROMYALGIA
     Dosage: 60 MG, QD
     Dates: start: 20070101
  2. CYMBALTA [Suspect]
     Dosage: 60 MG, QD
     Dates: start: 20110813, end: 20110815
  3. CYMBALTA [Suspect]
     Dosage: 30 MG, QD
     Dates: start: 20110818
  4. TRAMADOL HCL [Concomitant]
     Indication: FIBROMYALGIA
     Dosage: UNK
     Dates: start: 20070101, end: 20110813
  5. LISINOPRIL [Concomitant]
  6. KLONOPIN [Concomitant]

REACTIONS (17)
  - ABNORMAL BEHAVIOUR [None]
  - NAUSEA [None]
  - AGGRESSION [None]
  - CONFUSIONAL STATE [None]
  - ANXIETY [None]
  - HAEMATOCHEZIA [None]
  - SEROTONIN SYNDROME [None]
  - IRRITABILITY [None]
  - INSOMNIA [None]
  - ABDOMINAL DISCOMFORT [None]
  - MOVEMENT DISORDER [None]
  - FEELING ABNORMAL [None]
  - DYSPNOEA [None]
  - TREMOR [None]
  - VISION BLURRED [None]
  - DYSURIA [None]
  - DIARRHOEA [None]
